FAERS Safety Report 9833038 (Version 1)
Quarter: 2014Q1

REPORT INFORMATION
  Report Type: Spontaneous
  Country: US (occurrence: US)
  Receive Date: 20140121
  Receipt Date: 20140121
  Transmission Date: 20141002
  Serious: Yes (Hospitalization, Other)
  Sender: FDA-Public Use
  Company Number: US-PFIZER INC-2014015112

PATIENT
  Age: 61 Year
  Sex: Female
  Weight: 81.63 kg

DRUGS (11)
  1. ENBREL [Suspect]
     Indication: PSORIATIC ARTHROPATHY
     Dosage: UNK
     Dates: end: 2012
  2. OXYCODONE HYDROCHLORIDE [Suspect]
     Indication: PAIN MANAGEMENT
     Dosage: UNK
     Route: 065
  3. EFFEXOR [Suspect]
     Indication: PAIN MANAGEMENT
     Dosage: UNK
     Route: 065
  4. HUMIRA [Suspect]
     Indication: PSORIATIC ARTHROPATHY
     Dosage: UNK
     Route: 065
     Dates: end: 2012
  5. REMICADE [Suspect]
     Indication: PSORIATIC ARTHROPATHY
     Dosage: 8 MG/KG, UNK
     Route: 042
  6. REMICADE [Suspect]
     Dosage: 8 MG/KG, UNK
     Route: 042
     Dates: end: 2013
  7. REMICADE [Suspect]
     Dosage: 8 MG/KG, UNK
     Route: 042
  8. FENTANYL [Suspect]
     Indication: PAIN IN EXTREMITY
     Dosage: UNK
     Route: 062
     Dates: start: 2007
  9. AMITRIPTYLINE [Suspect]
     Indication: PAIN MANAGEMENT
     Dosage: UNK
     Route: 065
  10. AMBIEN [Suspect]
     Indication: PAIN MANAGEMENT
     Dosage: UNK
     Route: 065
  11. METHOTREXATE [Concomitant]
     Dosage: UNK

REACTIONS (4)
  - Cerebrovascular accident [Recovered/Resolved]
  - Cataract [Not Recovered/Not Resolved]
  - Osteomyelitis [Unknown]
  - Nasopharyngitis [Not Recovered/Not Resolved]
